FAERS Safety Report 20684698 (Version 1)
Quarter: 2022Q2

REPORT INFORMATION
  Report Type: Report from Study
  Country: US (occurrence: US)
  Receive Date: 20220407
  Receipt Date: 20220407
  Transmission Date: 20220720
  Serious: Yes (Hospitalization, Other)
  Sender: FDA-Public Use
  Company Number: US-BRISTOL-MYERS SQUIBB COMPANY-2022-015834

PATIENT
  Age: 65 Year
  Sex: Female
  Weight: 44.6 kg

DRUGS (3)
  1. NIVOLUMAB [Suspect]
     Active Substance: NIVOLUMAB
     Indication: Ovarian cancer
     Route: 042
     Dates: start: 20200324, end: 20211221
  2. BEVACIZUMAB [Suspect]
     Active Substance: BEVACIZUMAB
     Indication: Ovarian cancer
     Route: 042
     Dates: start: 20200324, end: 20210914
  3. RUCAPARIB [Concomitant]
     Active Substance: RUCAPARIB
     Indication: Product used for unknown indication
     Route: 048
     Dates: start: 20200324, end: 20200422

REACTIONS (2)
  - Failure to thrive [Unknown]
  - Pyrexia [Unknown]

NARRATIVE: CASE EVENT DATE: 20220318
